FAERS Safety Report 4296130-8 (Version None)
Quarter: 2004Q1

REPORT INFORMATION
  Report Type: 
  Country: None (occurrence: None)
  Receive Date: 20040217
  Receipt Date: 20030822
  Transmission Date: 20041129
  Serious: No
  Sender: FDA-Public Use
  Company Number: US-GLAXOSMITHKLINE-A0423104A

PATIENT
  Age: 58 Year
  Sex: Female

DRUGS (6)
  1. LAMICTAL [Suspect]
     Indication: BIPOLAR DISORDER
     Route: 048
     Dates: start: 20021202
  2. AMBIEN [Concomitant]
  3. CLONIDINE [Concomitant]
  4. ASACOL [Concomitant]
  5. INDAPAMIDE [Concomitant]
  6. METHADONE HCL [Concomitant]

REACTIONS (1)
  - RASH [None]
